FAERS Safety Report 8486545-6 (Version None)
Quarter: 2012Q3

REPORT INFORMATION
  Report Type: 
  Country: None (occurrence: None)
  Receive Date: 20120703
  Receipt Date: 20120622
  Transmission Date: 20120928
  Serious: Yes (Other)
  Sender: FDA-Public Use
  Company Number: US-BAYER-2012-062990

PATIENT
  Age: 51 Year
  Sex: Female
  Weight: 77.098 kg

DRUGS (2)
  1. ALKA-SELTZER PLUS SEVERE SINUS CONGESTION + COUGH LIQUID GELS [Suspect]
     Indication: NASOPHARYNGITIS
     Dosage: 2 DF, ONCE
     Route: 048
     Dates: start: 20120620, end: 20120620
  2. ANTIDEPRESSANTS [Concomitant]

REACTIONS (5)
  - EYE IRRITATION [None]
  - EYE SWELLING [None]
  - THROAT IRRITATION [None]
  - EYE PRURITUS [None]
  - HYPERSENSITIVITY [None]
